FAERS Safety Report 7280415-7 (Version None)
Quarter: 2011Q1

REPORT INFORMATION
  Report Type: 
  Country: None (occurrence: None)
  Receive Date: 20110208
  Receipt Date: 20110202
  Transmission Date: 20110831
  Serious: Yes (Hospitalization)
  Sender: FDA-Public Use
  Company Number: FR-PFIZER INC-2011023899

PATIENT
  Age: 81 Year
  Sex: Male

DRUGS (8)
  1. SEROPLEX [Suspect]
     Dosage: 5 MG, ALTERNATE DAY
     Route: 048
     Dates: end: 20101216
  2. ACETAMINOPHEN AND TRAMADOL HCL [Suspect]
     Dosage: UNK
     Route: 048
     Dates: start: 20101208, end: 20101216
  3. AVLOCARDYL [Concomitant]
  4. FUROSEMIDE [Concomitant]
  5. ZOLPIDEM [Suspect]
     Dosage: 10 MG, 1X/DAY
     Route: 048
     Dates: start: 20100101, end: 20101216
  6. LYRICA [Suspect]
     Indication: PAIN
     Dosage: UNK
     Route: 048
     Dates: start: 20100101, end: 20101216
  7. DIFFU K [Concomitant]
  8. PLAVIX [Concomitant]

REACTIONS (3)
  - CONFUSIONAL STATE [None]
  - HALLUCINATION, VISUAL [None]
  - CONDITION AGGRAVATED [None]
